FAERS Safety Report 8543610-2 (Version None)
Quarter: 2012Q3

REPORT INFORMATION
  Report Type: 
  Country: None (occurrence: None)
  Receive Date: 20120727
  Receipt Date: 20120719
  Transmission Date: 20120928
  Serious: Yes (Other)
  Sender: FDA-Public Use
  Company Number: MX-ROXANE LABORATORIES, INC.-2012-RO-01571RO

PATIENT
  Age: 20 Year
  Sex: Female

DRUGS (2)
  1. PREDNISONE [Suspect]
     Indication: LUPUS NEPHRITIS
  2. CYCLOPHOSPHAMIDE [Suspect]
     Indication: LUPUS NEPHRITIS
     Route: 042
     Dates: start: 20021111, end: 20030201

REACTIONS (1)
  - FOETAL GROWTH RESTRICTION [None]
